FAERS Safety Report 15568674 (Version 1)
Quarter: 2018Q4

REPORT INFORMATION
  Report Type: Spontaneous
  Country: US (occurrence: US)
  Receive Date: 20181031
  Receipt Date: 20181031
  Transmission Date: 20190205
  Serious: Yes (Death, Hospitalization, Other)
  Sender: FDA-Public Use
  Company Number: US-DRREDDYS-USA/USA/18/0104947

PATIENT
  Age: 30 Year
  Sex: Male

DRUGS (5)
  1. PREDNISONE. [Suspect]
     Active Substance: PREDNISONE
     Indication: HEPATOSPLENIC T-CELL LYMPHOMA
     Route: 065
  2. CYCLOPHOSPHAMIDE. [Suspect]
     Active Substance: CYCLOPHOSPHAMIDE
     Indication: HEPATOSPLENIC T-CELL LYMPHOMA
     Route: 065
  3. DOXORUBICIN HYDROCHLORIDE LIPOSOME INJECTION [Suspect]
     Active Substance: DOXORUBICIN HYDROCHLORIDE
     Indication: HEPATOSPLENIC T-CELL LYMPHOMA
     Route: 065
  4. VINCRISTINE [Suspect]
     Active Substance: VINCRISTINE
     Indication: HEPATOSPLENIC T-CELL LYMPHOMA
     Route: 065
  5. AZATHIOPRINE. [Concomitant]
     Active Substance: AZATHIOPRINE
     Indication: COLITIS ULCERATIVE
     Route: 065

REACTIONS (7)
  - Acute leukaemia [Fatal]
  - Staphylococcal infection [Unknown]
  - Clostridium difficile colitis [Unknown]
  - Renal failure [Unknown]
  - Pneumonia [Unknown]
  - Hepatic failure [Unknown]
  - Bacteraemia [Unknown]
